FAERS Safety Report 4507761-1 (Version None)
Quarter: 2004Q4

REPORT INFORMATION
  Report Type: 
  Country: None (occurrence: None)
  Receive Date: 20041123
  Receipt Date: 20041108
  Transmission Date: 20050328
  Serious: Yes (Other)
  Sender: FDA-Public Use
  Company Number: PT-JNJFOC-20041007848

PATIENT
  Sex: Male
  Weight: 16 kg

DRUGS (3)
  1. TOPAMAX [Suspect]
     Indication: EPILEPSY
     Route: 065
  2. VALPROATE SODIUM [Suspect]
     Route: 065
  3. CLONAZEPAM [Suspect]
     Route: 065

REACTIONS (6)
  - ASTHENIA [None]
  - ATAXIA [None]
  - CONDITION AGGRAVATED [None]
  - DIFFICULTY IN WALKING [None]
  - HYPOTONIA [None]
  - METASTASES TO CENTRAL NERVOUS SYSTEM [None]
